FAERS Safety Report 16781060 (Version 2)
Quarter: 2019Q3

REPORT INFORMATION
  Report Type: Spontaneous
  Country: NL (occurrence: DE)
  Receive Date: 20190906
  Receipt Date: 20190917
  Transmission Date: 20191005
  Serious: Yes (Hospitalization, Other)
  Sender: FDA-Public Use
  Company Number: DE-FRESENIUS KABI-FK201909598

PATIENT
  Age: 67 Year
  Sex: Female
  Weight: 80 kg

DRUGS (41)
  1. LEVODOPA/CARBIDOPA [Suspect]
     Active Substance: CARBIDOPA\LEVODOPA
     Dosage: 50 MG, TID
     Route: 048
     Dates: start: 20010910
  2. ATROPINE. [Suspect]
     Active Substance: ATROPINE
     Indication: SURGERY
     Dosage: 0.25 MG, QD
     Route: 042
     Dates: start: 20010904, end: 20010904
  3. PROPOFOL (MANUFACTURER UNKNOWN) [Suspect]
     Active Substance: PROPOFOL
     Indication: STUPOR
     Dosage: UNK, 1D
     Route: 042
     Dates: start: 20010910, end: 20010910
  4. TROPISETRON HYDROCHLORIDE [Suspect]
     Active Substance: TROPISETRON HYDROCHLORIDE
     Indication: PROPHYLAXIS OF NAUSEA AND VOMITING
     Dosage: 2 MG, QD
     Route: 042
     Dates: start: 20010910, end: 20010910
  5. LEVODOPA/CARBIDOPA [Suspect]
     Active Substance: CARBIDOPA\LEVODOPA
     Indication: PARKINSON^S DISEASE
     Dosage: 50 MG, TID
     Route: 048
     Dates: start: 20010904, end: 20010909
  6. KETAMINE [Suspect]
     Active Substance: KETAMINE
     Indication: STUPOR
     Dosage: UNK, 1D
     Route: 042
     Dates: start: 20010910, end: 20010910
  7. LEVODOPA/CARBIDOPA [Suspect]
     Active Substance: CARBIDOPA\LEVODOPA
     Dosage: 150 MG, TID
     Route: 048
  8. MIDAZOLAM [Suspect]
     Active Substance: MIDAZOLAM HYDROCHLORIDE
     Indication: PRODUCT USED FOR UNKNOWN INDICATION
     Dosage: UNK, 1D
     Route: 042
     Dates: start: 20010910, end: 20010910
  9. DIGITOXIN [Suspect]
     Active Substance: DIGITOXIN
     Indication: CARDIAC FAILURE
     Dosage: 0.07 MG, QD
     Route: 048
  10. SODIUM CHLORIDE/CALCIUM CHLORIDE DIHYDRATE/GELATINE POLYSUCCINATE [Concomitant]
     Indication: PRODUCT USED FOR UNKNOWN INDICATION
     Route: 042
     Dates: start: 20010910, end: 20010910
  11. CEFOTIAM HYDROCHLORIDE [Suspect]
     Active Substance: CEFOTIAM HYDROCHLORIDE
     Indication: PRODUCT USED FOR UNKNOWN INDICATION
     Dosage: 2 G, TID
     Route: 042
     Dates: start: 20010911
  12. PROPAFENONE HYDROCHLORIDE. [Suspect]
     Active Substance: PROPAFENONE HYDROCHLORIDE
     Indication: ARRHYTHMIA
     Dosage: 150 MG, BID
     Route: 048
     Dates: start: 20010904
  13. PROPAFENONE HYDROCHLORIDE. [Suspect]
     Active Substance: PROPAFENONE HYDROCHLORIDE
     Dosage: UNK UNK, IRD
     Route: 048
     Dates: start: 20010903
  14. FENTANYL. [Suspect]
     Active Substance: FENTANYL
     Indication: STUPOR
     Dosage: UNK, 1D
     Route: 042
     Dates: start: 20010910, end: 20010910
  15. PIRACETAM [Suspect]
     Active Substance: PIRACETAM
     Indication: PRODUCT USED FOR UNKNOWN INDICATION
     Dosage: UNK, 1D
     Route: 048
     Dates: start: 20010903
  16. POTASSIUM CHLORIDE/SODIUM CHLORIDE/CALCIUM CHLORIDE DIHYDRATE [Concomitant]
     Indication: PRODUCT USED FOR UNKNOWN INDICATION
     Route: 042
     Dates: start: 20010904, end: 20010904
  17. CALCIUM CARBONATE. [Concomitant]
     Active Substance: CALCIUM CARBONATE
     Indication: BLOOD CALCIUM DECREASED
     Dosage: UNK, IRD
     Route: 048
  18. RANITIDINE HYDROCHLORIDE. [Suspect]
     Active Substance: RANITIDINE HYDROCHLORIDE
     Indication: PRODUCT USED FOR UNKNOWN INDICATION
     Dosage: 100 ML, QD
     Route: 042
     Dates: start: 20010910, end: 20010910
  19. LEVODOPA/CARBIDOPA [Suspect]
     Active Substance: CARBIDOPA\LEVODOPA
     Dosage: 50 MG, TID
     Route: 048
     Dates: start: 20010910
  20. DIMETINDENE MALEATE [Suspect]
     Active Substance: DIMETHINDENE MALEATE
     Indication: PREMEDICATION
     Dosage: 8 ML, SINGLE
     Route: 042
     Dates: start: 20010910, end: 20010910
  21. LEVODOPA/CARBIDOPA [Suspect]
     Active Substance: CARBIDOPA\LEVODOPA
     Dosage: 150 MG, TID
     Route: 048
     Dates: start: 20010904, end: 20010909
  22. POTASSIUM CHLORIDE/SODIUM CHLORIDE/CALCIUM CHLORIDE DIHYDRATE [Concomitant]
     Route: 048
     Dates: start: 20010910, end: 20010910
  23. CALCIUM ACETATE/POTASSIUM ACETATE/SODIUM ACETATE/MAGNESIUM ACETATE/SODIUM CHLORIDE [Concomitant]
     Indication: PRODUCT USED FOR UNKNOWN INDICATION
     Dosage: 2500ML/DAY
     Route: 042
     Dates: start: 20010910
  24. LEVODOPA/CARBIDOPA [Suspect]
     Active Substance: CARBIDOPA\LEVODOPA
     Indication: PARKINSON^S DISEASE
     Dosage: 1500 OT, UNK
     Route: 048
     Dates: start: 20010910
  25. ATROPINE. [Suspect]
     Active Substance: ATROPINE
     Dosage: 0.25 MG, 1D
     Route: 042
     Dates: start: 20010910, end: 20010910
  26. AMEZINIUM METILSULFATE [Suspect]
     Active Substance: AMEZINIUM METILSULFATE
     Indication: PRODUCT USED FOR UNKNOWN INDICATION
     Dosage: 2.5 MG, QD
     Route: 042
     Dates: start: 20010910, end: 20010910
  27. CISATRACURIUM BESILATE [Suspect]
     Active Substance: CISATRACURIUM BESYLATE
     Indication: PRODUCT USED FOR UNKNOWN INDICATION
     Dosage: UNK, 1D
     Route: 042
     Dates: start: 20010910, end: 20010910
  28. METAMIZOLE SODIUM [Suspect]
     Active Substance: METAMIZOLE SODIUM
     Indication: PRODUCT USED FOR UNKNOWN INDICATION
     Dosage: 0.25 G, QD
     Route: 042
     Dates: start: 20010904, end: 20010904
  29. ROPIVACAINE HYDROCHLORIDE. [Suspect]
     Active Substance: ROPIVACAINE HYDROCHLORIDE
     Indication: STUPOR
     Dosage: 2 MG/10 ML
     Route: 042
     Dates: start: 20010910, end: 20010910
  30. PIRACETAM [Suspect]
     Active Substance: PIRACETAM
     Dosage: 1 DF, BID
     Route: 048
  31. DEXPANTHENOL/BENZALKONIUM CHLORIDE/PRUNUS DULCIS OIL [Suspect]
     Active Substance: ALMOND OIL\BENZALKONIUM CHLORIDE\DEXPANTHENOL
     Indication: PRODUCT USED FOR UNKNOWN INDICATION
     Dosage: 2DF/DAY
     Route: 042
     Dates: start: 20010911
  32. CERTOPARIN SODIUM [Suspect]
     Active Substance: CERTOPARIN SODIUM
     Indication: THROMBOSIS PROPHYLAXIS
     Dosage: 0.5 ML, QD
     Route: 058
     Dates: start: 20010910, end: 20010910
  33. DIMETINDENE MALEATE [Suspect]
     Active Substance: DIMETHINDENE MALEATE
     Indication: PREMEDICATION
     Dosage: 8 ML, QD
     Route: 042
     Dates: start: 20010910, end: 20010910
  34. SUFENTANIL CITRATE. [Suspect]
     Active Substance: SUFENTANIL CITRATE
     Indication: STUPOR
     Route: 042
     Dates: start: 20010910, end: 20010910
  35. ASCORBIC ACID/PYRIDOXINE HYDROCHLORIDE/BIOTIN/TOCOPHERYL ACETATE/THIAMINE HYDROCHLORIDE/CYANOCOBALAM [Suspect]
     Active Substance: VITAMINS
     Indication: PRODUCT USED FOR UNKNOWN INDICATION
     Dosage: 1DF/DAY
     Route: 065
     Dates: start: 20010911
  36. LEVODOPA/CARBIDOPA [Suspect]
     Active Substance: CARBIDOPA\LEVODOPA
     Dosage: UNK
     Route: 048
     Dates: start: 20010903
  37. REMIFENTANIL [Suspect]
     Active Substance: REMIFENTANIL
     Indication: PRODUCT USED FOR UNKNOWN INDICATION
     Dosage: 0.45 MG, QD
     Route: 042
     Dates: start: 20010904, end: 20010904
  38. THIOPENTAL [Suspect]
     Active Substance: THIOPENTAL
     Indication: STUPOR
     Dosage: 250 ML, QD
     Route: 042
     Dates: start: 20010904, end: 20010904
  39. NEOSTIGMINE. [Suspect]
     Active Substance: NEOSTIGMINE METHYLSULFATE
     Indication: PRODUCT USED FOR UNKNOWN INDICATION
     Dosage: 2 DF, QD
     Route: 042
     Dates: start: 20010911
  40. DIGITOXIN [Suspect]
     Active Substance: DIGITOXIN
     Route: 048
     Dates: start: 20010903
  41. LEVODOPA/CARBIDOPA [Suspect]
     Active Substance: CARBIDOPA\LEVODOPA
     Route: 048

REACTIONS (8)
  - Toxic epidermal necrolysis [Recovering/Resolving]
  - Blister [Recovering/Resolving]
  - Rash macular [Recovering/Resolving]
  - Petechiae [Recovering/Resolving]
  - Pyrexia [Recovered/Resolved]
  - Hysterectomy [Recovered/Resolved]
  - Stevens-Johnson syndrome [Recovering/Resolving]
  - Erythema [Recovering/Resolving]

NARRATIVE: CASE EVENT DATE: 20010910
